FAERS Safety Report 9034873 (Version 1)
Quarter: 2013Q1

REPORT INFORMATION
  Report Type: Spontaneous
  Country: DK (occurrence: None)
  Receive Date: 20130116
  Receipt Date: 20130116
  Transmission Date: 20140127
  Serious: Yes (Other)
  Sender: FDA-Public Use
  Company Number: 2013MA000244

PATIENT
  Age: 42 Year
  Sex: 0

DRUGS (4)
  1. BUTALBITAL, ASPIRIN AND CAFFEINE TABLETS USP, 50 MG/325 MG/40 MG (PUREPAC) (BUTALBITAL W/ASPIRIN, CAFFEINE) [Suspect]
     Indication: PRODUCT USED FOR UNKNOWN INDICATION
  2. HEPARIN (HEPARIN) [Suspect]
  3. REOPRO (ABCIXIMAB) [Suspect]
     Indication: PRODUCT USED FOR UNKNOWN INDICATION
  4. PRASUGREL (NO PREF. NAME) [Suspect]
     Indication: PRODUCT USED FOR UNKNOWN INDICATION

REACTIONS (1)
  - Cerebral haemorrhage [None]
